FAERS Safety Report 7021902-6 (Version None)
Quarter: 2010Q3

REPORT INFORMATION
  Report Type: 
  Country: None (occurrence: None)
  Receive Date: 20100930
  Receipt Date: 20100921
  Transmission Date: 20110219
  Serious: Yes (Hospitalization, Other)
  Sender: FDA-Public Use
  Company Number: US-US-EMD SERONO, INC.-7018496

PATIENT
  Sex: Male
  Weight: 64 kg

DRUGS (3)
  1. REBIF [Suspect]
     Indication: MULTIPLE SCLEROSIS
     Route: 058
     Dates: start: 20081210
  2. SOLU-MEDROL [Suspect]
     Indication: MULTIPLE SCLEROSIS RELAPSE
  3. TRAZODONE HCL [Concomitant]
     Indication: INSOMNIA

REACTIONS (22)
  - ANGER [None]
  - ASTHENIA [None]
  - BACK PAIN [None]
  - COAGULOPATHY [None]
  - DYSARTHRIA [None]
  - DYSPNOEA [None]
  - EATING DISORDER SYMPTOM [None]
  - ERYTHEMA [None]
  - EYE DISORDER [None]
  - HEADACHE [None]
  - HEART RATE ABNORMAL [None]
  - HYPERSOMNIA [None]
  - HYPOAESTHESIA [None]
  - HYPOAESTHESIA FACIAL [None]
  - MULTIPLE SCLEROSIS RELAPSE [None]
  - MUSCULOSKELETAL CHEST PAIN [None]
  - NAUSEA [None]
  - NECK PAIN [None]
  - PYREXIA [None]
  - SELF INJURIOUS BEHAVIOUR [None]
  - SWELLING [None]
  - VOMITING [None]
